FAERS Safety Report 20911210 (Version 1)
Quarter: 2022Q2

REPORT INFORMATION
  Report Type: Spontaneous
  Country: DE (occurrence: DE)
  Receive Date: 20220603
  Receipt Date: 20220603
  Transmission Date: 20220720
  Serious: Yes (Other)
  Sender: FDA-Public Use
  Company Number: DE-DCGMA-22196655

PATIENT
  Age: 79 Year
  Sex: Female
  Weight: 56 kg

DRUGS (5)
  1. SIMVASTATIN [Suspect]
     Active Substance: SIMVASTATIN
     Indication: Hypercholesterolaemia
     Dosage: DURATION 4YEARS, 20-40 MG
     Route: 048
     Dates: start: 2017, end: 202112
  2. BEMPEDOIC ACID [Suspect]
     Active Substance: BEMPEDOIC ACID
     Indication: Hypercholesterolaemia
     Dosage: 180MG, DURATION 4MONTHS
     Route: 048
     Dates: start: 202108, end: 202112
  3. LISINOPRIL [Concomitant]
     Active Substance: LISINOPRIL
  4. DAPAGLIFLOZIN [Concomitant]
     Active Substance: DAPAGLIFLOZIN
  5. PIRACETAM [Concomitant]
     Active Substance: PIRACETAM

REACTIONS (4)
  - Weight decreased [Unknown]
  - General physical health deterioration [Unknown]
  - Myalgia [Unknown]
  - Lupus-like syndrome [Unknown]

NARRATIVE: CASE EVENT DATE: 20210801
